FAERS Safety Report 5730674-4 (Version None)
Quarter: 2008Q2

REPORT INFORMATION
  Report Type: 
  Country: None (occurrence: None)
  Receive Date: 20080507
  Receipt Date: 20080429
  Transmission Date: 20081010
  Serious: Yes (Hospitalization)
  Sender: FDA-Public Use
  Company Number: FR-AVENTIS-200811656FR

PATIENT
  Age: 38 Year
  Sex: Female

DRUGS (9)
  1. CLOMID [Suspect]
     Route: 048
     Dates: start: 20070929, end: 20071002
  2. CLOMID [Suspect]
     Route: 048
     Dates: start: 20071120, end: 20071124
  3. GONADOTROPINS [Suspect]
     Route: 058
     Dates: start: 20070929, end: 20071005
  4. GONAL-F [Suspect]
     Route: 058
     Dates: start: 20071123, end: 20071127
  5. GONADOTROPHINE CHORIONIQUE ENDO [Suspect]
     Route: 030
     Dates: start: 20071006, end: 20071006
  6. GONADOTROPHINE CHORIONIQUE ENDO [Suspect]
     Route: 030
     Dates: start: 20071128, end: 20071128
  7. DUPHASTON [Concomitant]
     Indication: DRUG USE FOR UNKNOWN INDICATION
     Route: 048
  8. EFFEDERM                           /00279601/ [Concomitant]
     Indication: DRUG USE FOR UNKNOWN INDICATION
     Route: 003
  9. PONSTYL [Concomitant]
     Indication: DRUG USE FOR UNKNOWN INDICATION
     Route: 048

REACTIONS (2)
  - ARTHRALGIA [None]
  - MYALGIA [None]
